FAERS Safety Report 5399637-5 (Version None)
Quarter: 2007Q3

REPORT INFORMATION
  Report Type: 
  Country: None (occurrence: None)
  Receive Date: 20070727
  Receipt Date: 20070716
  Transmission Date: 20080115
  Serious: Yes (Other)
  Sender: FDA-Public Use
  Company Number: AU-PFIZER INC-2007051978

PATIENT
  Sex: Male

DRUGS (15)
  1. VFEND [Suspect]
     Indication: FUNGAL INFECTION
     Route: 048
     Dates: start: 20070418, end: 20070525
  2. VFEND [Suspect]
     Indication: BRONCHOPULMONARY ASPERGILLOSIS
  3. PREDNISOLONE [Concomitant]
     Dosage: DAILY DOSE:7MG
  4. NYSTATIN [Concomitant]
     Route: 048
  5. TIOTROPIUM [Concomitant]
  6. CALTRATE [Concomitant]
     Dosage: DAILY DOSE:600MG
  7. PANTOPRAZOLE SODIUM [Concomitant]
     Dosage: DAILY DOSE:40MG
  8. CLEXANE [Concomitant]
  9. ALENDRONATE SODIUM [Concomitant]
  10. SLOW-K [Concomitant]
  11. AUGMENTIN '125' [Concomitant]
     Dosage: TEXT:2 DF
  12. SYMBICORT [Concomitant]
     Dosage: TEXT:4 DF
  13. FUROSEMIDE INTENSOL [Concomitant]
     Dosage: DAILY DOSE:120MG
  14. TRAMADOL HCL [Concomitant]
  15. VENTOLIN [Concomitant]

REACTIONS (7)
  - AMAUROSIS FUGAX [None]
  - BLINDNESS [None]
  - BLINDNESS UNILATERAL [None]
  - NEURITIS [None]
  - RETINAL VEIN THROMBOSIS [None]
  - VISION BLURRED [None]
  - VISUAL DISTURBANCE [None]
